FAERS Safety Report 8991223 (Version 2)
Quarter: 2013Q1

REPORT INFORMATION
  Report Type: Spontaneous
  Country: US (occurrence: None)
  Receive Date: 20121220
  Receipt Date: 20121226
  Transmission Date: 20140127
  Serious: Yes (Hospitalization, Other)
  Sender: FDA-Public Use
  Company Number: ACO_33348_2012

PATIENT
  Age: 47 Year
  Sex: Female
  Weight: 61.7 kg

DRUGS (5)
  1. AMPYRA (DALFAMPRIDINE) TABLET, 10MG [Suspect]
     Route: 048
     Dates: start: 201012, end: 201111
  2. AVONEX (INTERFERON BETA-1A) [Concomitant]
     Dates: start: 2011
  3. SPIRONOLACTONE (SPIRONOLACTONE) [Concomitant]
  4. ALL OTHER NON-THERAPEUTIC PRODUCTS [Concomitant]
  5. VITAMINS [Concomitant]

REACTIONS (3)
  - Convulsion [None]
  - Inappropriate schedule of drug administration [None]
  - Drug ineffective [None]
